FAERS Safety Report 15772102 (Version 1)
Quarter: 2018Q4

REPORT INFORMATION
  Report Type: Spontaneous
  Country: US (occurrence: US)
  Receive Date: 20181228
  Receipt Date: 20181228
  Transmission Date: 20190205
  Serious: Yes (Other)
  Sender: FDA-Public Use
  Company Number: US-MYLANLABS-2018M1096546

PATIENT
  Age: 1 Decade
  Sex: Female

DRUGS (5)
  1. AZATHIOPRINE. [Suspect]
     Active Substance: AZATHIOPRINE
     Indication: IMMUNOSUPPRESSANT DRUG THERAPY
     Route: 065
  2. IMIQUIMOD. [Suspect]
     Active Substance: IMIQUIMOD
     Indication: ANOGENITAL WARTS
     Route: 061
  3. MYCOPHENOLIC ACID. [Suspect]
     Active Substance: MYCOPHENOLIC ACID
     Indication: IMMUNOSUPPRESSANT DRUG THERAPY
     Route: 065
  4. CIMETIDINE [Suspect]
     Active Substance: CIMETIDINE
     Indication: ANOGENITAL WARTS
     Dosage: 20 MG/KG/DOSE TWICE DAILY
     Route: 048
  5. TACROLIMUS. [Suspect]
     Active Substance: TACROLIMUS
     Indication: IMMUNOSUPPRESSANT DRUG THERAPY
     Dosage: UNK
     Route: 065

REACTIONS (5)
  - Anogenital warts [Recovered/Resolved]
  - Genital haemorrhage [Recovered/Resolved]
  - Skin papilloma [Recovered/Resolved]
  - Drug ineffective [Unknown]
  - Papilloma viral infection [Recovered/Resolved]
